FAERS Safety Report 5607596-2 (Version None)
Quarter: 2008Q1

REPORT INFORMATION
  Report Type: 
  Country: None (occurrence: None)
  Receive Date: 20080130
  Receipt Date: 20080123
  Transmission Date: 20080703
  Serious: Yes (Hospitalization, Other)
  Sender: FDA-Public Use
  Company Number: PHBS2007AT14647

PATIENT
  Age: 15 Year
  Sex: Female
  Weight: 50 kg

DRUGS (1)
  1. TRILEPTAL [Suspect]
     Indication: SUICIDE ATTEMPT
     Dosage: 12 G, ONCE/SINGLE

REACTIONS (9)
  - AGGRESSION [None]
  - AGITATION [None]
  - CONVULSION [None]
  - INTENTIONAL OVERDOSE [None]
  - MIOSIS [None]
  - NAUSEA [None]
  - SOMNOLENCE [None]
  - SUICIDE ATTEMPT [None]
  - VOMITING [None]
